FAERS Safety Report 9290553 (Version 1)
Quarter: 2013Q2

REPORT INFORMATION
  Report Type: Spontaneous
  Country: US (occurrence: None)
  Receive Date: 20130514
  Receipt Date: 20130514
  Transmission Date: 20140414
  Serious: Yes (Life-Threatening, Hospitalization)
  Sender: FDA-Public Use
  Company Number: None

PATIENT
  Age: 64 Year
  Sex: Male
  Weight: 45.5 kg

DRUGS (1)
  1. TOLBUTAMIDE [Suspect]
     Indication: DIABETES MELLITUS
     Route: 048
     Dates: start: 20070912, end: 20130507

REACTIONS (4)
  - Asthenia [None]
  - Decreased appetite [None]
  - Fatigue [None]
  - Hypoglycaemia [None]
